FAERS Safety Report 8781143 (Version 1)
Quarter: 2012Q4

REPORT INFORMATION
  Report Type: 
  Country: JP (occurrence: JP)
  Receive Date: 20120913
  Receipt Date: 20120913
  Transmission Date: 20130627
  Serious: Yes (Hospitalization)
  Sender: FDA-Public Use
  Company Number: JP-ACCORD-014627

PATIENT
  Age: 31 Year
  Sex: Male

DRUGS (2)
  1. MYCOPHENOLATE MOFETIL [Suspect]
     Indication: IMMUNOSUPPRESSION
     Dosage: Initially 1000 mg/day.
  2. TACROLIMUS [Suspect]
     Indication: IMMUNOSUPPRESSION

REACTIONS (10)
  - Post transplant lymphoproliferative disorder [Recovered/Resolved]
  - Epstein-Barr virus infection [Recovering/Resolving]
  - Nephropathy [Unknown]
  - Nephrotic syndrome [None]
  - Focal segmental glomerulosclerosis [None]
  - Disease recurrence [None]
  - Blood pressure increased [None]
  - Central nervous system lymphoma [None]
  - Brain oedema [None]
  - Haemodialysis [None]
